FAERS Safety Report 14896046 (Version 1)
Quarter: 2018Q2

REPORT INFORMATION
  Report Type: Spontaneous
  Country: US (occurrence: US)
  Receive Date: 20180515
  Receipt Date: 20180515
  Transmission Date: 20180711
  Serious: Yes (Other)
  Sender: FDA-Public Use
  Company Number: US-SUNOVION-2018SUN001899

PATIENT
  Sex: Male

DRUGS (1)
  1. LONHALA MAGNAIR [Suspect]
     Active Substance: GLYCOPYRROLATE
     Dosage: UNK, REGIMEN #1
     Route: 055

REACTIONS (2)
  - Gait inability [Unknown]
  - Hypotonia [Unknown]
